FAERS Safety Report 18051935 (Version 1)
Quarter: 2020Q3

REPORT INFORMATION
  Report Type: Spontaneous
  Country: US (occurrence: US)
  Receive Date: 20200722
  Receipt Date: 20200722
  Transmission Date: 20201103
  Serious: No
  Sender: FDA-Public Use
  Company Number: US-SHIRE-US202022936

PATIENT
  Age: 83 Year
  Sex: Female

DRUGS (4)
  1. GAMMAGARD LIQUID [Suspect]
     Active Substance: HUMAN IMMUNOGLOBULIN G
     Indication: DEMENTIA WITH LEWY BODIES
  2. GAMUNEX [Concomitant]
     Active Substance: HUMAN IMMUNOGLOBULIN G
     Indication: DEMENTIA WITH LEWY BODIES
  3. GAMUNEX [Concomitant]
     Active Substance: HUMAN IMMUNOGLOBULIN G
     Indication: PARKINSON^S DISEASE
  4. GAMMAGARD LIQUID [Suspect]
     Active Substance: HUMAN IMMUNOGLOBULIN G
     Indication: PARKINSON^S DISEASE

REACTIONS (4)
  - Intentional product use issue [Unknown]
  - Drug effective for unapproved indication [Unknown]
  - Product supply issue [Unknown]
  - Wrong technique in product usage process [Unknown]
